FAERS Safety Report 5016216-X (Version None)
Quarter: 2006Q2

REPORT INFORMATION
  Report Type: 
  Country: None (occurrence: None)
  Receive Date: 20060414
  Receipt Date: 20060209
  Transmission Date: 20061013
  Serious: No
  Sender: FDA-Public Use
  Company Number: 2006SP000707

PATIENT
  Age: 50 Year
  Sex: Male
  Weight: 102.0593 kg

DRUGS (5)
  1. LUNESTA [Suspect]
     Indication: INSOMNIA
     Dosage: 3 MG;HS;ORAL
     Route: 048
     Dates: start: 20060206
  2. SIMVASTATIN [Concomitant]
  3. INSULIN [Concomitant]
  4. GLUCOTROL XL [Concomitant]
  5. HYDROCODONE [Concomitant]

REACTIONS (1)
  - DYSGEUSIA [None]
